FAERS Safety Report 4461118-0 (Version None)
Quarter: 2004Q3

REPORT INFORMATION
  Report Type: 
  Country: None (occurrence: None)
  Receive Date: 20040923
  Receipt Date: 20040915
  Transmission Date: 20050211
  Serious: Yes (Life-Threatening)
  Sender: FDA-Public Use
  Company Number: 2004JP001695

PATIENT
  Age: 30 Year
  Sex: Male

DRUGS (1)
  1. PROGRAF [Suspect]
     Indication: BONE MARROW TRANSPLANT

REACTIONS (7)
  - GRAFT VERSUS HOST DISEASE [None]
  - HISTIOCYTOSIS HAEMATOPHAGIC [None]
  - POST PROCEDURAL COMPLICATION [None]
  - POST PROCEDURAL DIARRHOEA [None]
  - RENAL FAILURE ACUTE [None]
  - RESPIRATORY FAILURE [None]
  - VENOOCCLUSIVE LIVER DISEASE [None]
